FAERS Safety Report 5155243-9 (Version None)
Quarter: 2006Q4

REPORT INFORMATION
  Report Type: 
  Country: None (occurrence: None)
  Receive Date: 20061121
  Receipt Date: 20061109
  Transmission Date: 20070319
  Serious: Yes (Hospitalization)
  Sender: FDA-Public Use
  Company Number: PHRM2006FR03010

PATIENT
  Age: 11 Year
  Sex: Female

DRUGS (3)
  1. FORADIL [Suspect]
     Indication: ASTHMA
     Dosage: 12 UG, BID
     Dates: start: 20061106, end: 20061107
  2. SINGULAIR [Concomitant]
     Route: 048
     Dates: start: 20040101
  3. DOMPERIDONE [Concomitant]
     Route: 048
     Dates: start: 20040101

REACTIONS (4)
  - ASTHMA [None]
  - HEADACHE [None]
  - PYREXIA [None]
  - VOMITING [None]
